FAERS Safety Report 19140947 (Version 3)
Quarter: 2025Q4

REPORT INFORMATION
  Report Type: Report from Study
  Country: CA (occurrence: CA)
  Receive Date: 20210415
  Receipt Date: 20251013
  Transmission Date: 20260118
  Serious: Yes (Other)
  Sender: TAKEDA
  Company Number: CA-TAKEDA-2021TUS023101

PATIENT
  Age: 64 Year
  Sex: Female

DRUGS (10)
  1. VEDOLIZUMAB [Suspect]
     Active Substance: VEDOLIZUMAB
     Indication: Colitis ulcerative
     Dosage: 300 MILLIGRAM
  2. VEDOLIZUMAB [Suspect]
     Active Substance: VEDOLIZUMAB
     Dosage: 300 MILLIGRAM
  3. VEDOLIZUMAB [Suspect]
     Active Substance: VEDOLIZUMAB
     Dosage: 300 MILLIGRAM
  4. PREDNISONE [Concomitant]
     Active Substance: PREDNISONE
     Dosage: 20 MILLIGRAM
  5. Salofalk [Concomitant]
     Dosage: 2 GRAM
  6. IMURAN [Concomitant]
     Active Substance: AZATHIOPRINE
     Dosage: 150 MILLIGRAM
  7. AMILORIDE [Concomitant]
     Active Substance: AMILORIDE
     Indication: Diuretic therapy
     Dosage: UNK
  8. PANTOPRAZOLE [Concomitant]
     Active Substance: PANTOPRAZOLE
     Dosage: UNK
  9. ZOPICLONE [Concomitant]
     Active Substance: ZOPICLONE
     Indication: Sleep disorder
     Dosage: UNK
  10. REMICADE [Concomitant]
     Active Substance: INFLIXIMAB
     Dosage: UNK

REACTIONS (1)
  - Colitis ulcerative [Unknown]
